FAERS Safety Report 7175812-4 (Version None)
Quarter: 2010Q4

REPORT INFORMATION
  Report Type: 
  Country: None (occurrence: None)
  Receive Date: 20101220
  Receipt Date: 20100405
  Transmission Date: 20110411
  Serious: No
  Sender: FDA-Public Use
  Company Number: US-AMGEN-TCS398906

PATIENT

DRUGS (3)
  1. ENBREL [Suspect]
     Indication: PSORIATIC ARTHROPATHY
     Dosage: 50 MG, QWK
     Route: 058
     Dates: start: 20040801
  2. ENBREL [Suspect]
     Indication: PSORIASIS
  3. BETAMETHASONE [Concomitant]
     Dosage: .1 %, BID
     Dates: start: 20090224

REACTIONS (15)
  - ABDOMINAL PAIN UPPER [None]
  - BURNING SENSATION [None]
  - CARPAL TUNNEL SYNDROME [None]
  - DEFORMITY [None]
  - FINGER AMPUTATION [None]
  - FURUNCLE [None]
  - HEADACHE [None]
  - HYPOAESTHESIA [None]
  - LABORATORY TEST ABNORMAL [None]
  - MOTOR DYSFUNCTION [None]
  - PAIN IN EXTREMITY [None]
  - PARAESTHESIA [None]
  - POST PROCEDURAL INFECTION [None]
  - PSORIASIS [None]
  - SINUSITIS [None]
